FAERS Safety Report 7902826 (Version 4)
Quarter: 2014Q2

REPORT INFORMATION
  Report Type: Spontaneous
  Country: US (occurrence: US)
  Receive Date: 20110418
  Receipt Date: 20140415
  Transmission Date: 20141212
  Serious: Yes (Other)
  Sender: FDA-Public Use
  Company Number: US-ROCHE-771550

PATIENT
  Sex: Female
  Weight: 80.7 kg

DRUGS (1)
  1. ACCUTANE [Suspect]
     Indication: ACNE
     Route: 065
     Dates: start: 199712, end: 200101

REACTIONS (2)
  - Irritable bowel syndrome [Unknown]
  - Depression [Unknown]
